FAERS Safety Report 6710145-9 (Version None)
Quarter: 2010Q2

REPORT INFORMATION
  Report Type: 
  Country: None (occurrence: None)
  Receive Date: 20100504
  Receipt Date: 20100430
  Transmission Date: 20101027
  Serious: Yes (Other)
  Sender: FDA-Public Use
  Company Number: AU-BRISTOL-MYERS SQUIBB COMPANY-14960868

PATIENT
  Age: 61 Year
  Sex: Female
  Weight: 72 kg

DRUGS (2)
  1. AVAPRO [Suspect]
     Indication: HYPERTENSION
     Dosage: 1 D.F = 300/25 (AVAPRO HCT).
     Route: 048
     Dates: start: 20070530
  2. AVAPRO [Suspect]

REACTIONS (3)
  - BLINDNESS UNILATERAL [None]
  - DIZZINESS [None]
  - FATIGUE [None]
